FAERS Safety Report 5466116-6 (Version None)
Quarter: 2007Q3

REPORT INFORMATION
  Report Type: 
  Country: None (occurrence: None)
  Receive Date: 20070924
  Receipt Date: 20070912
  Transmission Date: 20080115
  Serious: Yes (Other)
  Sender: FDA-Public Use
  Company Number: US-PFIZER INC-2007042804

PATIENT
  Sex: Female
  Weight: 60.3 kg

DRUGS (2)
  1. GEODON [Suspect]
     Indication: SEDATION
     Dates: start: 20051001, end: 20060301
  2. THYROID TAB [Concomitant]

REACTIONS (3)
  - DEPRESSION [None]
  - SUICIDAL IDEATION [None]
  - WRONG TECHNIQUE IN DRUG USAGE PROCESS [None]
